FAERS Safety Report 10360450 (Version 1)
Quarter: 2014Q3

REPORT INFORMATION
  Report Type: Spontaneous
  Country: GB (occurrence: GB)
  Receive Date: 20140804
  Receipt Date: 20140804
  Transmission Date: 20150326
  Serious: Yes (Disabling)
  Sender: FDA-Public Use
  Company Number: PHHY2014GB092440

PATIENT
  Age: 1 Hour
  Sex: Female
  Weight: 3.74 kg

DRUGS (2)
  1. SODIUM CHLORIDE. [Concomitant]
     Active Substance: SODIUM CHLORIDE
     Indication: CATHETER MANAGEMENT
     Route: 042
     Dates: start: 20140707
  2. AMOXICILLIN. [Suspect]
     Active Substance: AMOXICILLIN
     Indication: SEPSIS
     Dosage: 500MG GIVEN BY INTRAVENOUS INFUSION OVER 30 MINUTES. REACTION OCCURRED AT END OF 3RD DOSE
     Route: 041
     Dates: start: 20140707

REACTIONS (2)
  - Off label use [Unknown]
  - Injection site reaction [Recovering/Resolving]

NARRATIVE: CASE EVENT DATE: 20140707
